FAERS Safety Report 8818509 (Version 1)
Quarter: 2012Q4

REPORT INFORMATION
  Report Type: 
  Country: US (occurrence: US)
  Receive Date: 20121001
  Receipt Date: 20121001
  Transmission Date: 20130627
  Serious: No
  Sender: FDA-Public Use
  Company Number: US-BRISTOL-MYERS SQUIBB COMPANY-16203317

PATIENT
  Age: 54 Year
  Sex: Female
  Weight: 91 kg

DRUGS (3)
  1. AVAPRO [Suspect]
     Dosage: product strength is 150/12.5
     Route: 048
  2. LISINOPRIL + HCTZ [Suspect]
     Dates: start: 20110913
  3. TOPROL XL [Concomitant]

REACTIONS (5)
  - Drug ineffective [Unknown]
  - Dizziness [Unknown]
  - Oedema peripheral [Unknown]
  - Cough [Unknown]
  - Throat irritation [Unknown]
